FAERS Safety Report 25925619 (Version 1)
Quarter: 2025Q4

REPORT INFORMATION
  Report Type: Spontaneous
  Country: US (occurrence: US)
  Receive Date: 20251015
  Receipt Date: 20251015
  Transmission Date: 20260119
  Serious: No
  Sender: SANOFI AVENTIS
  Company Number: US-SA-2025SA304999

PATIENT
  Age: 35 Year
  Sex: Female

DRUGS (2)
  1. LOVENOX [Suspect]
     Active Substance: ENOXAPARIN SODIUM
     Indication: Thrombosis
     Dosage: UNK
     Route: 065
  2. ROPEGINTERFERON ALFA-2B [Suspect]
     Active Substance: ROPEGINTERFERON ALFA-2B
     Indication: Polycythaemia vera
     Dosage: 100 UG, QOW
     Route: 058
     Dates: start: 20250815

REACTIONS (2)
  - Rash [Unknown]
  - Contusion [Unknown]

NARRATIVE: CASE EVENT DATE: 20240910
